FAERS Safety Report 9451047 (Version 2)
Quarter: 2013Q4

REPORT INFORMATION
  Report Type: Report from Study
  Country: US (occurrence: US)
  Receive Date: 20130809
  Receipt Date: 20131120
  Transmission Date: 20140711
  Serious: Yes (Hospitalization, Other)
  Sender: FDA-Public Use
  Company Number: US-US-EMD SERONO, INC.-7214764

PATIENT
  Age: 69 Year
  Sex: Female

DRUGS (1)
  1. REBIF [Suspect]
     Indication: PRODUCT USED FOR UNKNOWN INDICATION
     Route: 058
     Dates: start: 20130515, end: 201306

REACTIONS (5)
  - Hyperaesthesia [Not Recovered/Not Resolved]
  - Vomiting [Recovering/Resolving]
  - Hyponatraemia [Unknown]
  - Delirium [Unknown]
  - Hypertension [Unknown]
